FAERS Safety Report 9208133 (Version 1)
Quarter: 2013Q2

REPORT INFORMATION
  Report Type: Spontaneous
  Country: JP (occurrence: JP)
  Receive Date: 20130403
  Receipt Date: 20130403
  Transmission Date: 20140414
  Serious: Yes (Other)
  Sender: FDA-Public Use
  Company Number: JP-MYLANLABS-2013S1006512

PATIENT
  Sex: Female

DRUGS (1)
  1. QUININE [Suspect]
     Indication: HAEMORRHOID OPERATION
     Dosage: 0.5 - 1.0 CC DOSE
     Route: 030

REACTIONS (2)
  - Exposure during pregnancy [Unknown]
  - Off label use [Unknown]
